FAERS Safety Report 6654410-2 (Version None)
Quarter: 2010Q1

REPORT INFORMATION
  Report Type: 
  Country: None (occurrence: None)
  Receive Date: 20100326
  Receipt Date: 20100316
  Transmission Date: 20100710
  Serious: Yes (Other)
  Sender: FDA-Public Use
  Company Number: IE-PFIZER INC-2010034123

PATIENT
  Age: 32 Year
  Sex: Male

DRUGS (1)
  1. CLINDAMYCIN HCL [Suspect]
     Dosage: 900MG IN 75ML , UNK
     Route: 042

REACTIONS (4)
  - CHEST PAIN [None]
  - HYPOTONIA [None]
  - SYNCOPE [None]
  - UNRESPONSIVE TO STIMULI [None]
